FAERS Safety Report 9327277 (Version 3)
Quarter: 2014Q1

REPORT INFORMATION
  Report Type: Spontaneous
  Country: US (occurrence: US)
  Receive Date: 20130604
  Receipt Date: 20140203
  Transmission Date: 20141002
  Serious: No
  Sender: FDA-Public Use
  Company Number: US-AMGEN-USASP2013036558

PATIENT
  Age: 57 Year
  Sex: Female

DRUGS (3)
  1. ENBREL [Suspect]
     Indication: RHEUMATOID ARTHRITIS
     Dosage: 50 MG, ONCE WEEKLY
     Route: 065
     Dates: start: 201305
  2. ENBREL [Suspect]
     Dosage: UNK
     Route: 065
  3. ENBREL [Suspect]
     Dosage: UNK
     Route: 065

REACTIONS (8)
  - Injection site reaction [Not Recovered/Not Resolved]
  - Injection site erythema [Not Recovered/Not Resolved]
  - Injection site paraesthesia [Not Recovered/Not Resolved]
  - Injection site swelling [Not Recovered/Not Resolved]
  - Injection site pain [Not Recovered/Not Resolved]
  - Injection site discolouration [Not Recovered/Not Resolved]
  - Injection site induration [Not Recovered/Not Resolved]
  - Injection site pruritus [Not Recovered/Not Resolved]
